FAERS Safety Report 6217830-6 (Version None)
Quarter: 2009Q2

REPORT INFORMATION
  Report Type: 
  Country: None (occurrence: None)
  Receive Date: 20090608
  Receipt Date: 20090604
  Transmission Date: 20091009
  Serious: Yes (Death)
  Sender: FDA-Public Use
  Company Number: JP-ASTRAZENECA-2009SE02284

PATIENT
  Age: 10 Month
  Sex: Male

DRUGS (7)
  1. MEROPEN [Suspect]
     Indication: MENINGITIS
     Route: 042
  2. ROCEPHIN [Concomitant]
     Indication: MENINGITIS
  3. CLAFORAN [Concomitant]
     Indication: MENINGITIS
  4. MIRACLID [Concomitant]
     Indication: MENINGITIS
  5. FAMOTIDINE [Concomitant]
     Indication: MENINGITIS
  6. STEROID [Concomitant]
     Indication: MENINGITIS
  7. POLYGAM S/D [Concomitant]
     Dosage: 1G/KG

REACTIONS (1)
  - DRUG RASH WITH EOSINOPHILIA AND SYSTEMIC SYMPTOMS [None]
